FAERS Safety Report 15201436 (Version 1)
Quarter: 2018Q3

REPORT INFORMATION
  Report Type: Spontaneous
  Country: NO (occurrence: NO)
  Receive Date: 20180726
  Receipt Date: 20180726
  Transmission Date: 20181010
  Serious: Yes (Hospitalization, Other)
  Sender: FDA-Public Use
  Company Number: NO-TEVA-2018-NO-930238

PATIENT
  Age: 42 Year
  Sex: Female

DRUGS (12)
  1. SOBRIL [Concomitant]
     Active Substance: OXAZEPAM
  2. CALCIGRAN FORTE [Concomitant]
     Active Substance: CALCIUM CARBONATE\CHOLECALCIFEROL
  3. VITAMIN B12 [Concomitant]
     Active Substance: CYANOCOBALAMIN
  4. OXYCODONE [Concomitant]
     Active Substance: OXYCODONE
  5. ACLASTA [Concomitant]
     Active Substance: ZOLEDRONIC ACID
  6. FOLIC ACID. [Concomitant]
     Active Substance: FOLIC ACID
  7. VIMOVO [Concomitant]
     Active Substance: ESOMEPRAZOLE MAGNESIUM\NAPROXEN
  8. GABAPENTIN. [Suspect]
     Active Substance: GABAPENTIN
     Indication: PHANTOM PAIN
     Route: 048
     Dates: start: 201711, end: 20171222
  9. LYRICA [Suspect]
     Active Substance: PREGABALIN
     Indication: PHANTOM PAIN
     Dosage: DOSE INCREASED TO 150 MG X 3 FROM 16/12/2018.
     Route: 048
     Dates: start: 20171222, end: 20180213
  10. PARACET [Concomitant]
     Active Substance: ACETAMINOPHEN
  11. METHOTREXATE. [Concomitant]
     Active Substance: METHOTREXATE
  12. PREDNISOLONE. [Concomitant]
     Active Substance: PREDNISOLONE

REACTIONS (1)
  - Muscle rigidity [Recovering/Resolving]

NARRATIVE: CASE EVENT DATE: 201711
